FAERS Safety Report 7841450-0 (Version None)
Quarter: 2011Q4

REPORT INFORMATION
  Report Type: 
  Country: None (occurrence: None)
  Receive Date: 20111025
  Receipt Date: 20111016
  Transmission Date: 20120403
  Serious: Yes (Other)
  Sender: FDA-Public Use
  Company Number: BR-JNJFOC-20110906022

PATIENT
  Age: 60 Year
  Sex: Male

DRUGS (2)
  1. REMICADE [Suspect]
     Indication: CROHN'S DISEASE
     Route: 042
     Dates: start: 20110912
  2. REMICADE [Suspect]
     Route: 042
     Dates: start: 20110314

REACTIONS (2)
  - LIP AND/OR ORAL CAVITY CANCER [None]
  - GINGIVAL SWELLING [None]
